FAERS Safety Report 23251947 (Version 4)
Quarter: 2025Q1

REPORT INFORMATION
  Report Type: Report from Study
  Country: US (occurrence: US)
  Receive Date: 20231201
  Receipt Date: 20250114
  Transmission Date: 20250409
  Serious: Yes (Other)
  Sender: ALEXION PHARMACEUTICALS
  Company Number: US-ALXN-A202110828AA

PATIENT

DRUGS (8)
  1. STRENSIQ [Suspect]
     Active Substance: ASFOTASE ALFA
     Indication: Hypophosphatasia
  2. STRENSIQ [Suspect]
     Active Substance: ASFOTASE ALFA
     Route: 058
  3. STRENSIQ [Suspect]
     Active Substance: ASFOTASE ALFA
  4. STRENSIQ [Suspect]
     Active Substance: ASFOTASE ALFA
     Route: 058
  5. STRENSIQ [Suspect]
     Active Substance: ASFOTASE ALFA
  6. STRENSIQ [Suspect]
     Active Substance: ASFOTASE ALFA
     Route: 058
  7. STRENSIQ [Suspect]
     Active Substance: ASFOTASE ALFA
  8. STRENSIQ [Suspect]
     Active Substance: ASFOTASE ALFA
     Route: 058

REACTIONS (21)
  - Hodgkin^s disease [Unknown]
  - Femur fracture [Recovering/Resolving]
  - Injection site hypertrophy [Unknown]
  - Pruritus [Unknown]
  - Rash macular [Unknown]
  - Therapy non-responder [Unknown]
  - Muscular weakness [Unknown]
  - Arthralgia [Unknown]
  - Vitamin B6 increased [Unknown]
  - Limb injury [Unknown]
  - Tendon injury [Unknown]
  - Off label use [Unknown]
  - Musculoskeletal disorder [Unknown]
  - Stress fracture [Unknown]
  - Fracture [Unknown]
  - Injection site reaction [Not Recovered/Not Resolved]
  - Arthritis [Unknown]
  - Bone pain [Unknown]
  - Injection site discolouration [Unknown]
  - Fall [Unknown]
  - Asthenia [Unknown]
